FAERS Safety Report 20592403 (Version 1)
Quarter: 2022Q1

REPORT INFORMATION
  Report Type: Spontaneous
  Country: US (occurrence: None)
  Receive Date: 20220314
  Receipt Date: 20220314
  Transmission Date: 20220423
  Serious: No
  Sender: FDA-Public Use
  Company Number: US-ROCHE-2776441

PATIENT
  Age: 71 Year
  Sex: Female

DRUGS (2)
  1. XOLAIR [Suspect]
     Active Substance: OMALIZUMAB
     Indication: Chronic spontaneous urticaria
     Route: 058
     Dates: start: 20210115
  2. XOLAIR [Suspect]
     Active Substance: OMALIZUMAB
     Route: 058
     Dates: start: 20210212

REACTIONS (7)
  - Lip swelling [Recovered/Resolved]
  - Swelling face [Unknown]
  - Eye swelling [Recovered/Resolved]
  - Back pain [Unknown]
  - Headache [Unknown]
  - Fatigue [Unknown]
  - Urticaria [Recovered/Resolved]
